FAERS Safety Report 15518581 (Version 1)
Quarter: 2018Q4

REPORT INFORMATION
  Report Type: Spontaneous
  Country: US (occurrence: US)
  Receive Date: 20181017
  Receipt Date: 20181017
  Transmission Date: 20190205
  Serious: No
  Sender: FDA-Public Use
  Company Number: US-ACTELION-A-NJ2018-180089

PATIENT
  Age: 2 Year
  Sex: Female

DRUGS (2)
  1. TRACLEER [Suspect]
     Active Substance: BOSENTAN
     Indication: PULMONARY ARTERIAL HYPERTENSION
     Dosage: 15.65 MG, BID
     Route: 048
     Dates: start: 20170412
  2. REVATIO [Concomitant]
     Active Substance: SILDENAFIL CITRATE
     Dosage: 11 MG, TID
     Dates: start: 20170412

REACTIONS (2)
  - Iron deficiency [Recovering/Resolving]
  - Serum ferritin decreased [Unknown]

NARRATIVE: CASE EVENT DATE: 20180929
